FAERS Safety Report 8027774-5 (Version None)
Quarter: 2011Q4

REPORT INFORMATION
  Report Type: 
  Country: None (occurrence: None)
  Receive Date: 20111130
  Receipt Date: 20110622
  Transmission Date: 20120403
  Serious: Yes (Other)
  Sender: FDA-Public Use
  Company Number: US201003004460

PATIENT
  Age: 59 Year
  Sex: Female
  Weight: 133.8 kg

DRUGS (13)
  1. METFORMIN HCL [Concomitant]
  2. BETA BLOCKING AGENTS [Concomitant]
  3. CRESTOR [Concomitant]
  4. EXENATIDE, DISPOSABLE DEVICE (EXENATIDE PEN ) PEN,DISPOSABLE [Concomitant]
  5. CALCIUM CARBONATE [Concomitant]
  6. NITROQUICK (GLYCERYL TRINITRATE) [Concomitant]
  7. TYLENOL /0002001/ (PARACETAMOL) [Concomitant]
  8. ANTIBIOTICS [Concomitant]
  9. MELOXICAM [Concomitant]
  10. BYETTA [Suspect]
     Dates: start: 20070725, end: 20070925
  11. BYETTA [Suspect]
     Dates: end: 20090101
  12. BYETTA [Suspect]
     Dates: start: 20070913, end: 20071013
  13. ALPRAZOLAM [Concomitant]

REACTIONS (5)
  - CREATININE URINE INCREASED [None]
  - RENAL INJURY [None]
  - CREATININE RENAL CLEARANCE INCREASED [None]
  - CROHN'S DISEASE [None]
  - PANCREATITIS [None]
